FAERS Safety Report 8326039-1 (Version None)
Quarter: 2012Q2

REPORT INFORMATION
  Report Type: 
  Country: None (occurrence: None)
  Receive Date: 20120501
  Receipt Date: 20120426
  Transmission Date: 20120825
  Serious: Yes (Death)
  Sender: FDA-Public Use
  Company Number: US-GLAXOSMITHKLINE-A0747559A

PATIENT
  Age: 86 Year
  Sex: Female
  Weight: 76.8 kg

DRUGS (2)
  1. METFORMIN HCL [Concomitant]
  2. AVANDIA [Suspect]
     Indication: TYPE 2 DIABETES MELLITUS
     Dosage: 4MG TWICE PER DAY
     Route: 048
     Dates: start: 20050801, end: 20060225

REACTIONS (2)
  - DEATH [None]
  - MYOCARDIAL INFARCTION [None]
